FAERS Safety Report 7342640-6 (Version None)
Quarter: 2011Q1

REPORT INFORMATION
  Report Type: 
  Country: None (occurrence: None)
  Receive Date: 20110310
  Receipt Date: 20100909
  Transmission Date: 20110831
  Serious: Yes (Hospitalization, Other)
  Sender: FDA-Public Use
  Company Number: US-BAYER-201023405NA

PATIENT
  Sex: Female
  Weight: 95.238 kg

DRUGS (3)
  1. YAZ [Suspect]
     Indication: ORAL CONTRACEPTION
     Dosage: UNK UNK, UNK
     Route: 048
     Dates: start: 20071101, end: 20090601
  2. NAPROXEN [Concomitant]
     Dosage: UNK
     Dates: start: 20080201
  3. YASMIN [Suspect]
     Indication: PRODUCT USED FOR UNKNOWN INDICATION
     Dosage: UNK UNK, UNK
     Route: 048
     Dates: start: 20071101, end: 20080701

REACTIONS (7)
  - BACK PAIN [None]
  - GASTROOESOPHAGEAL REFLUX DISEASE [None]
  - GALLBLADDER DISORDER [None]
  - VOMITING [None]
  - ABDOMINAL PAIN [None]
  - NAUSEA [None]
  - CHEST PAIN [None]
